FAERS Safety Report 14347836 (Version 5)
Quarter: 2018Q2

REPORT INFORMATION
  Report Type: Spontaneous
  Country: DK (occurrence: DK)
  Receive Date: 20180103
  Receipt Date: 20180508
  Transmission Date: 20180711
  Serious: Yes (Death, Other)
  Sender: FDA-Public Use
  Company Number: DK-MYLANLABS-2017M1083636

PATIENT
  Age: 56 Year
  Sex: Male

DRUGS (2)
  1. ETOPOSIDE. [Suspect]
     Active Substance: ETOPOSIDE
     Indication: NASAL SINUS CANCER
     Dosage: 120 MG/M2, 3XW, DAY ONE TO THREE EVERY THREE WEEKS FOR A TOTAL OF 4 SERIES (4 CYCLE)
     Route: 042
  2. CISPLATIN. [Suspect]
     Active Substance: CISPLATIN
     Indication: NASAL SINUS CANCER
     Dosage: 75 MG/M2, Q3W, CISPLATINUM 75 MG/M2 I.V. DAY ONE EVERY THREE WEEKS FOR A TOTAL OF 4 SERIES (4 CYCLE)
     Route: 042

REACTIONS (2)
  - Neutropenia [Recovered/Resolved]
  - Nasal sinus cancer [Fatal]
